FAERS Safety Report 10090594 (Version 2)
Quarter: 2014Q2

REPORT INFORMATION
  Report Type: Spontaneous
  Country: DK (occurrence: FR)
  Receive Date: 20140421
  Receipt Date: 20140501
  Transmission Date: 20141212
  Serious: Yes (Hospitalization)
  Sender: FDA-Public Use
  Company Number: FR-FRI-1000066609

PATIENT
  Age: 79 Year
  Sex: Male

DRUGS (16)
  1. ESCITALOPRAM [Suspect]
     Indication: DEPRESSION
     Dosage: 10 MG
     Route: 048
     Dates: start: 20130814, end: 20140204
  2. ESCITALOPRAM [Suspect]
     Indication: DEPRESSION
     Dosage: 15 MG
     Route: 048
     Dates: start: 20140204, end: 2014
  3. ESCITALOPRAM [Suspect]
     Dosage: DOSE REDUCED (NOS)
     Route: 048
     Dates: start: 2014
  4. TEMERIT [Concomitant]
     Dosage: 5 MG
  5. HEMIGOXINE [Concomitant]
     Dosage: 0.0625 MG
  6. XARELTO [Concomitant]
     Dosage: 15 MG
  7. KARDEGIC [Concomitant]
     Dosage: 75 MG
  8. GALVUS [Concomitant]
     Dosage: 50 MG
  9. LASILIX [Concomitant]
     Dosage: 40 MG
  10. ZYLORIC [Concomitant]
     Dosage: 50 MG
  11. INEXIUM [Concomitant]
     Dosage: 20 MG
  12. CALCIUM [Concomitant]
     Dosage: 500 MG
  13. LANSOYL [Concomitant]
  14. EDUCTYL [Concomitant]
  15. TOBRADEX [Concomitant]
  16. OCUFEN [Concomitant]

REACTIONS (3)
  - Convulsion [Recovering/Resolving]
  - Off label use [Recovered/Resolved]
  - Medication error [Recovered/Resolved]
